FAERS Safety Report 19053029 (Version 1)
Quarter: 2021Q1

REPORT INFORMATION
  Report Type: Spontaneous
  Country: US (occurrence: US)
  Receive Date: 20210324
  Receipt Date: 20210324
  Transmission Date: 20210420
  Serious: Yes (Hospitalization)
  Sender: FDA-Public Use
  Company Number: US-MYLANLABS-2021M1017024

PATIENT
  Age: 39 Year
  Sex: Male

DRUGS (7)
  1. BIVALIRUDIN. [Concomitant]
     Active Substance: BIVALIRUDIN
     Indication: ANTICOAGULANT THERAPY
     Dosage: 0.12 MG/KG/H
     Route: 042
  2. BIVALIRUDIN. [Concomitant]
     Active Substance: BIVALIRUDIN
     Dosage: 0.05 MILLIGRAM/KILOGRAM, QH
     Route: 042
  3. BIVALIRUDIN. [Concomitant]
     Active Substance: BIVALIRUDIN
     Dosage: 0.27 MILLIGRAM/KILOGRAM, QH ON DAY 42
     Route: 042
  4. DEXTROSE. [Concomitant]
     Active Substance: DEXTROSE
     Indication: VEHICLE SOLUTION USE
     Dosage: 250 MILLILITER
     Route: 042
  5. HEPARIN [Suspect]
     Active Substance: HEPARIN SODIUM
     Indication: CARDIAC VENTRICULAR THROMBOSIS
     Dosage: UNK
     Route: 065
  6. BIVALIRUDIN. [Suspect]
     Active Substance: BIVALIRUDIN
     Indication: ANTICOAGULANT THERAPY
     Dosage: UNK
     Route: 042
  7. DOPAMINE [Concomitant]
     Active Substance: DOPAMINE HYDROCHLORIDE
     Indication: CARDIOGENIC SHOCK
     Dosage: UNK
     Route: 065

REACTIONS (2)
  - Heparin-induced thrombocytopenia [Recovered/Resolved]
  - Off label use [Unknown]
